FAERS Safety Report 23626247 (Version 4)
Quarter: 2024Q3

REPORT INFORMATION
  Report Type: Report from Study
  Country: US (occurrence: US)
  Receive Date: 20240313
  Receipt Date: 20240911
  Transmission Date: 20241017
  Serious: Yes (Other)
  Sender: UCB
  Company Number: US-UCBSA-2024011604

PATIENT
  Sex: Male

DRUGS (6)
  1. FINTEPLA [Suspect]
     Active Substance: FENFLURAMINE
     Indication: Lennox-Gastaut syndrome
     Dosage: 7.5 MILLILITER, 2X/DAY (BID)
     Dates: start: 20240203
  2. FINTEPLA [Suspect]
     Active Substance: FENFLURAMINE
     Dosage: 4.3 MILLILITER, 2X/DAY (BID)
     Dates: start: 20240205, end: 2024
  3. FINTEPLA [Suspect]
     Active Substance: FENFLURAMINE
     Dosage: 6 MILLILITER, 2X/DAY (BID)
     Dates: start: 2024, end: 2024
  4. FINTEPLA [Suspect]
     Active Substance: FENFLURAMINE
     Dosage: 6 MILLILITER, 2X/DAY (BID)
     Dates: start: 2024
  5. EPIDIOLEX [Concomitant]
     Active Substance: CANNABIDIOL
     Indication: Product used for unknown indication
     Dosage: UNK
  6. EPIDIOLEX [Concomitant]
     Active Substance: CANNABIDIOL
     Dosage: DOSE DECREASED

REACTIONS (5)
  - Atonic seizures [Not Recovered/Not Resolved]
  - Somnolence [Not Recovered/Not Resolved]
  - Restlessness [Not Recovered/Not Resolved]
  - Respiratory tract congestion [Not Recovered/Not Resolved]
  - Off label use [Unknown]

NARRATIVE: CASE EVENT DATE: 20240101
